FAERS Safety Report 9022628 (Version 2)
Quarter: 2013Q2

REPORT INFORMATION
  Report Type: Spontaneous
  Country: DK (occurrence: DK)
  Receive Date: 20130120
  Receipt Date: 20130524
  Transmission Date: 20140414
  Serious: Yes (Other)
  Sender: FDA-Public Use
  Company Number: PHHY2012DK104259

PATIENT
  Sex: 0

DRUGS (8)
  1. METHOTREXATE [Suspect]
     Indication: ARTHRITIS
     Dosage: 15 MG, WEEKLY
     Dates: start: 20110517
  2. LAMOTRIGINE [Suspect]
     Indication: DEPRESSION
     Dates: start: 20110512
  3. AGOMELATINE [Suspect]
     Indication: DEPRESSION
     Dates: start: 20110324
  4. EFFEXOR [Suspect]
     Indication: DEPRESSION
     Dosage: 375 MG, QD
     Dates: start: 20100622
  5. FOLIMET [Concomitant]
     Indication: PROPHYLAXIS
     Dosage: 5 MG, QW
  6. ETHINYLESTRADIOL [Concomitant]
     Indication: PROPHYLAXIS
     Dates: start: 2000
  7. IBUPROFEN [Concomitant]
     Indication: BACK INJURY
     Dosage: 600 MG
     Dates: start: 200102
  8. IBUPROFEN [Concomitant]
     Dosage: 600MG AS REQUIRED
     Dates: start: 200102

REACTIONS (12)
  - Anorgasmia [Unknown]
  - Hyperhidrosis [Unknown]
  - Dyskinesia [Recovering/Resolving]
  - Agitation [Recovering/Resolving]
  - Amnesia [Recovering/Resolving]
  - Disturbance in attention [Recovering/Resolving]
  - Insomnia [Recovering/Resolving]
  - Nightmare [Recovering/Resolving]
  - Hot flush [Recovering/Resolving]
  - Anxiety [Recovering/Resolving]
  - Tremor [Recovering/Resolving]
  - Loss of libido [Unknown]
